FAERS Safety Report 7242786-7 (Version None)
Quarter: 2011Q1

REPORT INFORMATION
  Report Type: 
  Country: None (occurrence: None)
  Receive Date: 20110125
  Receipt Date: 20110111
  Transmission Date: 20110831
  Serious: Yes (Death)
  Sender: FDA-Public Use
  Company Number: US-CELGENEUS-163-21880-10123173

PATIENT
  Sex: Female

DRUGS (4)
  1. REVLIMID [Suspect]
     Indication: MULTIPLE MYELOMA
     Route: 048
     Dates: start: 20101116, end: 20101206
  2. DEXAMETHASONE [Concomitant]
     Route: 048
  3. MORPHINE SULFATE [Concomitant]
     Route: 048
  4. COUMADIN [Concomitant]
     Route: 048

REACTIONS (1)
  - MULTIPLE MYELOMA [None]
